FAERS Safety Report 24717799 (Version 1)
Quarter: 2024Q4

REPORT INFORMATION
  Report Type: Spontaneous
  Country: US (occurrence: US)
  Receive Date: 20241210
  Receipt Date: 20241210
  Transmission Date: 20250115
  Serious: No
  Sender: GLAXOSMITHKLINE
  Company Number: US-GSK-US2024143014

PATIENT
  Sex: Female

DRUGS (1)
  1. BENLYSTA [Suspect]
     Active Substance: BELIMUMAB
     Indication: Systemic lupus erythematosus

REACTIONS (5)
  - Nausea [Recovering/Resolving]
  - Rash [Not Recovered/Not Resolved]
  - Pruritus [Unknown]
  - Migraine [Unknown]
  - Skin disorder [Unknown]

NARRATIVE: CASE EVENT DATE: 20240701
